FAERS Safety Report 8735461 (Version 2)
Quarter: 2013Q4

REPORT INFORMATION
  Report Type: Spontaneous
  Country: US (occurrence: US)
  Receive Date: 20120822
  Receipt Date: 20131101
  Transmission Date: 20140711
  Serious: Yes (Other)
  Sender: FDA-Public Use
  Company Number: US-MSD-1207USA001780

PATIENT
  Age: 53 Year
  Sex: Male

DRUGS (3)
  1. PEGINTRON [Suspect]
     Indication: HEPATITIS C
     Dosage: 150 MICROGRAM, QW
     Route: 058
     Dates: start: 20120313, end: 20120420
  2. RIBAVIRIN (WARRICK) [Concomitant]
  3. TELAPREVIR [Concomitant]
     Dosage: UNK

REACTIONS (4)
  - Pruritus generalised [Unknown]
  - Hypersensitivity [Unknown]
  - Rash [Unknown]
  - Urticaria [Unknown]
